FAERS Safety Report 5356605-7 (Version None)
Quarter: 2007Q2

REPORT INFORMATION
  Report Type: 
  Country: None (occurrence: None)
  Receive Date: 20070614
  Receipt Date: 20070608
  Transmission Date: 20071010
  Serious: Yes (Life-Threatening, Hospitalization)
  Sender: FDA-Public Use
  Company Number: PHRM2007FR01618

PATIENT
  Age: 8 Year
  Sex: Male

DRUGS (2)
  1. VALPROATE SODIUM [Suspect]
     Indication: PARTIAL SEIZURES
     Route: 048
  2. TRILEPTAL [Suspect]
     Indication: PARTIAL SEIZURES
     Dosage: 150 MG, BID
     Route: 048
     Dates: start: 20061201, end: 20070601

REACTIONS (6)
  - DEHYDRATION [None]
  - DIARRHOEA [None]
  - HEPATITIS [None]
  - LEUKOPENIA [None]
  - THROMBOCYTOPENIA [None]
  - TRANSAMINASES INCREASED [None]
